FAERS Safety Report 7757833-3 (Version None)
Quarter: 2011Q3

REPORT INFORMATION
  Report Type: 
  Country: None (occurrence: None)
  Receive Date: 20110918
  Receipt Date: 20110831
  Transmission Date: 20111222
  Serious: Yes (Other)
  Sender: FDA-Public Use
  Company Number: PHHY2011JP81553

PATIENT
  Age: 68 Year
  Sex: Female

DRUGS (4)
  1. NATEGLINIDE [Suspect]
     Indication: TYPE 2 DIABETES MELLITUS
     Dosage: 270 MG, QD
     Route: 048
     Dates: start: 20110803, end: 20110818
  2. NON-PYRINE COLD PREPARATION [Suspect]
     Dosage: 4 G, UNK
     Route: 048
     Dates: start: 20110811, end: 20110818
  3. BASEN [Concomitant]
     Dosage: 0.9 MG, UNK
  4. BIOFERMIN [Concomitant]

REACTIONS (3)
  - GRANULOCYTE COUNT DECREASED [None]
  - NASOPHARYNGITIS [None]
  - NEUTROPHIL COUNT DECREASED [None]
